FAERS Safety Report 21402516 (Version 2)
Quarter: 2023Q2

REPORT INFORMATION
  Report Type: Report from Study
  Country: US (occurrence: US)
  Receive Date: 20221003
  Receipt Date: 20230601
  Transmission Date: 20230722
  Serious: Yes (Hospitalization)
  Sender: FDA-Public Use
  Company Number: US-ARGENX-2022-ARGX-US001173

PATIENT
  Age: 74 Year
  Sex: Female

DRUGS (1)
  1. VYVGART [Suspect]
     Active Substance: EFGARTIGIMOD ALFA-FCAB
     Indication: Myasthenia gravis
     Dosage: 10 MG/KG
     Dates: start: 20220708

REACTIONS (10)
  - COVID-19 [Unknown]
  - Dyspnoea [Unknown]
  - Pain [Unknown]
  - Diarrhoea [Recovered/Resolved]
  - Headache [Unknown]
  - Muscular weakness [Unknown]
  - Nausea [Unknown]
  - Drooling [Unknown]
  - Myasthenia gravis [Unknown]
  - Pain in extremity [Unknown]

NARRATIVE: CASE EVENT DATE: 20220708
